FAERS Safety Report 4536331-4 (Version None)
Quarter: 2004Q4

REPORT INFORMATION
  Report Type: 
  Country: None (occurrence: None)
  Receive Date: 20041223
  Receipt Date: 20040714
  Transmission Date: 20050328
  Serious: Yes (Other)
  Sender: FDA-Public Use
  Company Number: US-GLAXOSMITHKLINE-A0518212A

PATIENT
  Age: 53 Year
  Sex: Male

DRUGS (2)
  1. FLONASE [Suspect]
     Dosage: 200MCG PER DAY
     Route: 045
     Dates: end: 20040709
  2. NO CONCURRENT MEDICATION [Concomitant]

REACTIONS (1)
  - CATARACT [None]
